FAERS Safety Report 25176511 (Version 5)
Quarter: 2025Q3

REPORT INFORMATION
  Report Type: Report from Study
  Country: CA (occurrence: CA)
  Receive Date: 20250409
  Receipt Date: 20250803
  Transmission Date: 20251021
  Serious: Yes (Death, Other)
  Sender: ALEXION PHARMACEUTICALS
  Company Number: CA-AstraZeneca-CH-00842140A

PATIENT
  Sex: Male
  Weight: 63.492 kg

DRUGS (7)
  1. TEZEPELUMAB [Suspect]
     Active Substance: TEZEPELUMAB
     Dates: start: 20240508, end: 20250115
  2. TEZEPELUMAB [Suspect]
     Active Substance: TEZEPELUMAB
  3. OLODATEROL HYDROCHLORIDE\TIOTROPIUM BROMIDE MONOHYDRATE [Concomitant]
     Active Substance: OLODATEROL HYDROCHLORIDE\TIOTROPIUM BROMIDE MONOHYDRATE
     Dosage: 2.5 MICROGRAM, QD, 2 PUFFS
  4. PREDNISONE [Concomitant]
     Active Substance: PREDNISONE
     Route: 065
  5. SINGULAIR [Concomitant]
     Active Substance: MONTELUKAST SODIUM
     Route: 065
  6. VENTOLIN [Concomitant]
     Active Substance: ALBUTEROL SULFATE
     Route: 065
  7. ZENHALE [Concomitant]
     Active Substance: FORMOTEROL FUMARATE\MOMETASONE FUROATE
     Dosage: 200 MICROGRAM, BID, 2 PUFFS
     Route: 065

REACTIONS (8)
  - Mental impairment [Unknown]
  - Hallucination [Unknown]
  - Confusional state [Unknown]
  - Hyperhidrosis [Unknown]
  - Dyspnoea [Unknown]
  - Muscle spasms [Unknown]
  - Pain [Unknown]
  - Death [Fatal]
